FAERS Safety Report 5709134-2 (Version None)
Quarter: 2008Q2

REPORT INFORMATION
  Report Type: 
  Country: None (occurrence: None)
  Receive Date: 20080416
  Receipt Date: 20080416
  Transmission Date: 20081010
  Serious: Yes (Other)
  Sender: FDA-Public Use
  Company Number: None

PATIENT
  Age: 63 Year
  Sex: Female
  Weight: 68.7 kg

DRUGS (6)
  1. HIGH DOSE ALDESLEUKIN, NOVARTIS [Suspect]
     Indication: METASTATIC RENAL CELL CARCINOMA
     Dosage: 42 MILLION IU  Q8 HOURS IV/IJ
     Route: 042
     Dates: start: 20080310, end: 20080315
  2. HIGH DOSE ALDESLEUKIN, NOVARTIS [Suspect]
     Indication: METASTATIC RENAL CELL CARCINOMA
     Dosage: 42 MILLION IU  Q8 HOURS IV/IJ
     Route: 042
     Dates: start: 20080325, end: 20080328
  3. ATIVAN [Concomitant]
  4. XANAX [Concomitant]
  5. FUROSIMIDE [Concomitant]
  6. OTC NATURAL TEARS [Concomitant]

REACTIONS (4)
  - DRUG TOXICITY [None]
  - IRIDOCYCLITIS [None]
  - PRURITUS [None]
  - VISION BLURRED [None]
